FAERS Safety Report 12493735 (Version 2)
Quarter: 2016Q3

REPORT INFORMATION
  Report Type: Spontaneous
  Country: LT (occurrence: LT)
  Receive Date: 20160623
  Receipt Date: 20160720
  Transmission Date: 20161109
  Serious: Yes (Hospitalization, Other)
  Sender: FDA-Public Use
  Company Number: LT-PFIZER INC-2016307051

PATIENT
  Age: 49 Year
  Sex: Male
  Weight: 65 kg

DRUGS (4)
  1. METHOTREXATE SODIUM. [Suspect]
     Active Substance: METHOTREXATE SODIUM
     Indication: ANKYLOSING SPONDYLITIS
     Dosage: 5 MG, WEEKLY
     Dates: start: 20131210
  2. ENBREL [Suspect]
     Active Substance: ETANERCEPT
     Indication: ANKYLOSING SPONDYLITIS
     Dosage: 50 MG, WEEKLY
     Dates: start: 20131210, end: 201601
  3. MELOXICAM. [Concomitant]
     Active Substance: MELOXICAM
     Indication: ANKYLOSING SPONDYLITIS
     Dosage: 15 MG, DAILY
     Dates: start: 20131210
  4. AC.FOLICI [Concomitant]
     Indication: ANKYLOSING SPONDYLITIS
     Dosage: 5 MG, WEEKLY
     Dates: start: 20131210

REACTIONS (1)
  - Pulmonary tuberculosis [Recovering/Resolving]
